FAERS Safety Report 10506833 (Version 1)
Quarter: 2014Q3

REPORT INFORMATION
  Report Type: Spontaneous
  Country: US (occurrence: None)
  Receive Date: 20140915
  Receipt Date: 20140915
  Transmission Date: 20150326
  Serious: Yes (Other)
  Sender: FDA-Public Use
  Company Number: 2013-US-002917

PATIENT
  Age: 35 Year
  Sex: Female
  Weight: 64.9 kg

DRUGS (6)
  1. MONONESSA (ETHINYL ESTRADIOL, NORGESTIMATE) [Concomitant]
  2. SEROQUEL [Concomitant]
     Active Substance: QUETIAPINE FUMARATE
  3. XYREM [Suspect]
     Active Substance: SODIUM OXYBATE
     Indication: NARCOLEPSY
     Route: 048
     Dates: start: 201212, end: 2013
  4. KLONOPIN [Concomitant]
     Active Substance: CLONAZEPAM
  5. TRAMADOL [Suspect]
     Active Substance: TRAMADOL
     Indication: PRODUCT USED FOR UNKNOWN INDICATION
  6. LYRICA [Concomitant]
     Active Substance: PREGABALIN

REACTIONS (8)
  - Tooth disorder [None]
  - Neck pain [None]
  - Hypersensitivity [None]
  - Weight decreased [None]
  - Inappropriate schedule of drug administration [None]
  - Sinusitis [None]
  - Fibromyalgia [None]
  - Back pain [None]

NARRATIVE: CASE EVENT DATE: 201212
